FAERS Safety Report 22599538 (Version 1)
Quarter: 2023Q2

REPORT INFORMATION
  Report Type: Report from Study
  Country: CH (occurrence: None)
  Receive Date: 20230614
  Receipt Date: 20230614
  Transmission Date: 20230722
  Serious: Yes (Hospitalization)
  Sender: FDA-Public Use
  Company Number: CH-ROCHE-3352752

PATIENT
  Age: 75 Year
  Sex: Male
  Weight: 69 kg

DRUGS (4)
  1. RITUXIMAB [Suspect]
     Active Substance: RITUXIMAB
     Indication: Follicular lymphoma
     Dosage: 5 CYCLES (840 MG)
     Route: 041
     Dates: start: 20230124
  2. RITUXIMAB [Suspect]
     Active Substance: RITUXIMAB
     Dosage: 682 MILLIGRAM
     Route: 041
     Dates: start: 20230418
  3. TAFASITAMAB-CXIX [Suspect]
     Active Substance: TAFASITAMAB-CXIX
     Indication: Follicular lymphoma
     Dosage: MOST RECENT DOSE WAS ADMINISTERED ON 18/APR/2023
     Route: 042
     Dates: start: 20230124
  4. LENALIDOMIDE [Suspect]
     Active Substance: LENALIDOMIDE
     Indication: Follicular lymphoma
     Route: 048
     Dates: start: 20230424

REACTIONS (1)
  - COVID-19 [Recovered/Resolved]

NARRATIVE: CASE EVENT DATE: 20230426
